FAERS Safety Report 21091857 (Version 1)
Quarter: 2022Q3

REPORT INFORMATION
  Report Type: Report from Study
  Country: CA (occurrence: CA)
  Receive Date: 20220717
  Receipt Date: 20220717
  Transmission Date: 20221026
  Serious: Yes (Hospitalization, Other)
  Sender: FDA-Public Use
  Company Number: CA-ABBVIE-22K-028-4469267-00

PATIENT
  Age: 84 Year
  Sex: Female

DRUGS (1)
  1. SKYRIZI [Suspect]
     Active Substance: RISANKIZUMAB-RZAA
     Indication: Psoriasis
     Route: 058
     Dates: start: 20210527

REACTIONS (6)
  - Fall [Unknown]
  - Head injury [Unknown]
  - Cardiac failure [Unknown]
  - Fall [Unknown]
  - Psoriasis [Unknown]
  - Injection site pain [Unknown]

NARRATIVE: CASE EVENT DATE: 20220512
